FAERS Safety Report 23620490 (Version 1)
Quarter: 2024Q1

REPORT INFORMATION
  Report Type: Spontaneous
  Country: GB (occurrence: GB)
  Receive Date: 20240312
  Receipt Date: 20240312
  Transmission Date: 20240410
  Serious: Yes (Other)
  Sender: FDA-Public Use
  Company Number: GB-PIRAMAL PHARMA LIMITED-2024-PPL-000157

PATIENT

DRUGS (26)
  1. SEVOFLURANE [Suspect]
     Active Substance: SEVOFLURANE
     Indication: Adverse drug reaction
     Dosage: 5-15ML/HR; ;
     Dates: start: 20210726, end: 20210731
  2. AMIODARONE [Concomitant]
     Active Substance: AMIODARONE
     Indication: Atrial fibrillation
     Dosage: UNK
     Dates: start: 20210723, end: 20210727
  3. ANIDULAFUNGIN [Concomitant]
     Active Substance: ANIDULAFUNGIN
     Indication: Infection
     Dosage: UNK
     Dates: start: 20210810, end: 20210815
  4. BISOPROLOL [Concomitant]
     Active Substance: BISOPROLOL\BISOPROLOL FUMARATE
     Indication: Atrial fibrillation
     Dosage: UNK
     Dates: start: 20210724, end: 20210727
  5. CISATRACURIUM [Concomitant]
     Active Substance: CISATRACURIUM
     Indication: Paralysis
     Dosage: UNK
     Dates: start: 202107, end: 202107
  6. CLARITHROMYCIN [Concomitant]
     Active Substance: CLARITHROMYCIN
     Indication: Infection
     Dosage: UNK
     Dates: start: 20210723, end: 20210727
  7. AMOXICILLIN\CLAVULANATE POTASSIUM [Concomitant]
     Active Substance: AMOXICILLIN\CLAVULANATE POTASSIUM
     Indication: Infection
     Dosage: UNK
     Dates: start: 20210723, end: 20210727
  8. DEXAMETHASONE [Concomitant]
     Active Substance: DEXAMETHASONE
     Indication: COVID-19 pneumonia
     Dosage: UNK
     Dates: start: 20210723, end: 20210815
  9. FENOFIBRATE [Concomitant]
     Active Substance: FENOFIBRATE
     Indication: Hypertriglyceridaemia
     Dosage: UNK
     Dates: start: 202107, end: 20210815
  10. FENTANYL [Concomitant]
     Active Substance: FENTANYL\FENTANYL CITRATE
     Indication: Sedation
     Dosage: UNK
     Dates: start: 20210723, end: 20210815
  11. FUROSEMIDE [Concomitant]
     Active Substance: FUROSEMIDE
     Indication: Polyuria
     Dosage: UNK
     Dates: start: 20210724, end: 20210725
  12. HEPARIN [Concomitant]
     Active Substance: HEPARIN SODIUM
     Indication: Adverse drug reaction
     Dosage: UNK
     Dates: start: 20210723, end: 20210806
  13. INSULIN HUMAN [Concomitant]
     Active Substance: INSULIN HUMAN
     Indication: Hyperglycaemia
     Dosage: UNK
     Dates: start: 20210723, end: 20210814
  14. LACTULOSE [Concomitant]
     Active Substance: LACTULOSE
     Indication: Constipation
     Dosage: UNK
     Dates: start: 20210723, end: 20210729
  15. LANSOPRAZOLE [Concomitant]
     Active Substance: LANSOPRAZOLE
     Indication: Antacid therapy
     Dosage: UNK
     Dates: start: 20210723, end: 20210815
  16. LEVEMIR [Concomitant]
     Active Substance: INSULIN DETEMIR
     Indication: Hyperglycaemia
     Dosage: UNK
     Dates: start: 20210724, end: 20210809
  17. POLYETHYLENE GLYCOLS [Concomitant]
     Active Substance: POLYETHYLENE GLYCOLS
     Indication: Constipation
     Dosage: UNK
     Dates: start: 20210723, end: 20210730
  18. METARAMINOL [Concomitant]
     Active Substance: METARAMINOL
     Indication: Hypotension
     Dosage: UNK
     Dates: start: 20210728, end: 20210728
  19. MIDAZOLAM [Concomitant]
     Active Substance: MIDAZOLAM
     Indication: Sedation
     Dosage: UNK
     Dates: start: 20210731, end: 20210813
  20. NORADRENALINE                      /00127501/ [Concomitant]
     Indication: Hypotension
     Dosage: UNK
     Dates: start: 20210728, end: 20210731
  21. PABRINEX                           /00041801/ [Concomitant]
     Indication: Adverse drug reaction
     Dosage: UNK
     Dates: start: 20210723, end: 20210724
  22. PANTOPRAZOLE [Concomitant]
     Active Substance: PANTOPRAZOLE
     Indication: Antacid therapy
     Dosage: UNK
     Dates: start: 20210730, end: 20210812
  23. PROPOFOL [Concomitant]
     Active Substance: PROPOFOL
     Indication: Sedation
     Dosage: UNK
     Dates: start: 20210723, end: 20210730
  24. QUETIAPINE [Concomitant]
     Active Substance: QUETIAPINE
     Indication: Sedation
     Dosage: UNK
     Dates: start: 20210729, end: 20210730
  25. REMIFENTANIL [Concomitant]
     Active Substance: REMIFENTANIL
     Indication: Sedation
     Dosage: UNK
     Dates: start: 20210731, end: 20210802
  26. BENDROFLUMETHIAZIDE [Concomitant]
     Active Substance: BENDROFLUMETHIAZIDE
     Indication: Polyuria
     Dosage: UNK
     Dates: start: 20210728, end: 20210730

REACTIONS (1)
  - Diabetes insipidus [Unknown]

NARRATIVE: CASE EVENT DATE: 20210731
